FAERS Safety Report 16673596 (Version 1)
Quarter: 2019Q3

REPORT INFORMATION
  Report Type: Spontaneous
  Country: US (occurrence: US)
  Receive Date: 20190806
  Receipt Date: 20190806
  Transmission Date: 20191004
  Serious: Yes (Other)
  Sender: FDA-Public Use
  Company Number: US-TEVA-2019-US-1087242

PATIENT
  Age: 32 Year
  Sex: Male

DRUGS (5)
  1. 5-FLUOROURACIL [Suspect]
     Active Substance: FLUOROURACIL
     Dosage: 2 CYCLES OF CISPLATIN AND FLUOROURACIL AFTER COMPETION OF INDUCTION CHEMOTHERAPY
     Route: 065
  2. CISPLATIN. [Suspect]
     Active Substance: CISPLATIN
     Dosage: 2 CYCLES OF CISPLATIN AND FLUOROURACIL AFTER COMPETION OF INDUCTION CHEMOTHERAPY
     Route: 065
  3. CISPLATIN. [Suspect]
     Active Substance: CISPLATIN
     Indication: HEAD AND NECK CANCER STAGE IV
     Dosage: ON DAY 1 -INDUCTION CHEMOTHERAPY
     Route: 065
  4. DOCETAXEL. [Suspect]
     Active Substance: DOCETAXEL
     Indication: HEAD AND NECK CANCER STAGE IV
     Dosage: ON DAY 1 -INDUCTION CHEMOTHERAPY
     Route: 065
  5. 5-FLUOROURACIL [Suspect]
     Active Substance: FLUOROURACIL
     Indication: HEAD AND NECK CANCER STAGE IV
     Dosage: CONTINUOUS 96-H INTRAVENOUS INFUSION-INDUCTION CHEMOTHERAPY
     Route: 050

REACTIONS (1)
  - Mucosal inflammation [Unknown]
